FAERS Safety Report 8162808-9 (Version None)
Quarter: 2012Q1

REPORT INFORMATION
  Report Type: 
  Country: None (occurrence: None)
  Receive Date: 20120224
  Receipt Date: 20120214
  Transmission Date: 20120608
  Serious: Yes (Death)
  Sender: FDA-Public Use
  Company Number: JP-PFIZER INC-2012044109

PATIENT
  Age: 78 Year
  Sex: Male
  Weight: 51.4 kg

DRUGS (24)
  1. SOLON [Concomitant]
     Indication: PROPHYLAXIS
     Dosage: UNK
     Route: 048
     Dates: end: 20111210
  2. SELBEX [Concomitant]
     Indication: PROPHYLAXIS
     Dosage: UNK
     Route: 048
     Dates: start: 20111121, end: 20111128
  3. PRIMPERAN TAB [Concomitant]
     Dosage: UNK
     Route: 042
     Dates: start: 20111121, end: 20111125
  4. IPD [Concomitant]
     Dosage: UNK
     Route: 048
     Dates: end: 20111210
  5. VOLTAREN [Concomitant]
     Indication: CHILLS
     Dosage: UNK
     Dates: end: 20111210
  6. HANP [Concomitant]
     Dosage: UNK
     Route: 042
     Dates: start: 20111125, end: 20111210
  7. DICLOFENAC SODIUM [Concomitant]
     Indication: CHILLS
     Dosage: UNK
     Dates: start: 20111208, end: 20111208
  8. ALINAMIN F [Concomitant]
     Indication: HYPOVITAMINOSIS
     Dosage: UNK
     Route: 042
     Dates: start: 20111121, end: 20111210
  9. VIAGRA [Suspect]
     Indication: PULMONARY HYPERTENSION
     Dosage: 20 MG, 3X/DAY
     Route: 048
     Dates: start: 20111019
  10. AMBRISENTAN [Concomitant]
     Dosage: UNK
     Route: 048
     Dates: start: 20111031, end: 20111210
  11. METHYLPREDNISOLONE SODIUM SUCCINATE [Concomitant]
     Dosage: UNK
     Route: 042
     Dates: start: 20111128, end: 20111130
  12. METHYLPREDNISOLONE SODIUM SUCCINATE [Concomitant]
     Dosage: UNK
     Route: 042
     Dates: start: 20111209, end: 20111210
  13. FAMOTIDINE [Concomitant]
     Indication: PROPHYLAXIS
     Dosage: UNK
     Route: 048
     Dates: start: 20111022, end: 20111210
  14. BISOLVON [Concomitant]
     Dosage: UNK
     Route: 042
     Dates: start: 20111126, end: 20111210
  15. DORIPENEM MONOHYDRATE [Concomitant]
     Dosage: UNK
     Route: 042
     Dates: start: 20111028, end: 20111101
  16. DORIPENEM MONOHYDRATE [Concomitant]
     Dosage: UNK
     Route: 042
     Dates: start: 20111121, end: 20111125
  17. NEORAL [Concomitant]
     Dosage: UNK
     Route: 048
     Dates: end: 20111210
  18. LOXONIN [Concomitant]
     Indication: PROPHYLAXIS
     Dosage: UNK
     Route: 048
     Dates: start: 20111121, end: 20111128
  19. EMPYNASE P [Concomitant]
     Indication: PROPHYLAXIS
     Dosage: UNK
     Route: 048
     Dates: start: 20111121, end: 20111128
  20. DORIPENEM MONOHYDRATE [Concomitant]
     Dosage: UNK
     Route: 042
     Dates: start: 20111209, end: 20111210
  21. CLARITIN [Concomitant]
     Dosage: UNK
     Route: 048
     Dates: end: 20111210
  22. FAROM [Concomitant]
     Indication: PROPHYLAXIS
     Dosage: UNK
     Route: 048
     Dates: start: 20111121, end: 20111128
  23. ACETAMINOPHEN [Concomitant]
     Indication: CHILLS
     Dosage: UNK
     Dates: start: 20111208, end: 20111208
  24. CEFTRIAXONE SODIUM [Concomitant]
     Dosage: UNK
     Route: 042
     Dates: start: 20111126, end: 20111208

REACTIONS (1)
  - DEATH [None]
